FAERS Safety Report 14581239 (Version 4)
Quarter: 2022Q4

REPORT INFORMATION
  Report Type: Spontaneous
  Country: US (occurrence: None)
  Receive Date: 20180228
  Receipt Date: 20221005
  Transmission Date: 20230113
  Serious: Yes (Other)
  Sender: FDA-Public Use
  Company Number: 2018SE24251

PATIENT
  Age: 71 Year
  Sex: Female
  Weight: 81.2 kg

DRUGS (137)
  1. NEXIUM [Suspect]
     Active Substance: ESOMEPRAZOLE MAGNESIUM
     Indication: Gastrooesophageal reflux disease
     Route: 048
     Dates: start: 2005, end: 2007
  2. NEXIUM [Suspect]
     Active Substance: ESOMEPRAZOLE MAGNESIUM
     Indication: Gastrooesophageal reflux disease
     Route: 048
     Dates: start: 2005, end: 2016
  3. NEXIUM [Suspect]
     Active Substance: ESOMEPRAZOLE MAGNESIUM
     Indication: Gastrooesophageal reflux disease
     Route: 048
     Dates: start: 20051004
  4. NEXIUM 24HR [Suspect]
     Active Substance: ESOMEPRAZOLE MAGNESIUM
     Route: 048
     Dates: start: 2005, end: 2016
  5. PRILOSEC OTC [Suspect]
     Active Substance: OMEPRAZOLE MAGNESIUM
     Route: 048
     Dates: start: 2005, end: 2016
  6. OMEPRAZOLE [Suspect]
     Active Substance: OMEPRAZOLE
     Indication: Gastrooesophageal reflux disease
     Dosage: GENERIC
     Route: 065
     Dates: start: 2010, end: 2016
  7. OMEPRAZOLE [Suspect]
     Active Substance: OMEPRAZOLE
     Indication: Gastrooesophageal reflux disease
     Dosage: GENERIC
     Route: 065
     Dates: start: 20080528
  8. OMEPRAZOLE [Suspect]
     Active Substance: OMEPRAZOLE
     Indication: Gastrooesophageal reflux disease
     Dosage: GENERIC
     Route: 065
     Dates: start: 20110124
  9. OMEPRAZOLE [Suspect]
     Active Substance: OMEPRAZOLE
     Indication: Gastrooesophageal reflux disease
     Dosage: GENERIC
     Route: 048
     Dates: start: 20150421
  10. PREVACID [Suspect]
     Active Substance: LANSOPRAZOLE
     Indication: Gastrooesophageal reflux disease
     Route: 065
     Dates: start: 2005, end: 2016
  11. PREVACID [Suspect]
     Active Substance: LANSOPRAZOLE
     Indication: Gastrooesophageal reflux disease
     Dosage: PREVACID- TK ONE T PO D
     Route: 065
     Dates: start: 20071220
  12. PREVACID [Suspect]
     Active Substance: LANSOPRAZOLE
     Indication: Gastrooesophageal reflux disease
     Route: 065
     Dates: start: 2007
  13. PREVACID [Suspect]
     Active Substance: LANSOPRAZOLE
     Indication: Gastrooesophageal reflux disease
     Route: 065
     Dates: start: 2008
  14. PREVACID 24 HR [Suspect]
     Active Substance: LANSOPRAZOLE
     Indication: Gastrooesophageal reflux disease
     Route: 065
     Dates: start: 2005, end: 2016
  15. PREVACID 24 HR [Suspect]
     Active Substance: LANSOPRAZOLE
     Indication: Gastrooesophageal reflux disease
     Dosage: PREVACID- TK ONE T PO D
     Route: 065
     Dates: start: 20071220
  16. PREVACID 24 HR [Suspect]
     Active Substance: LANSOPRAZOLE
     Indication: Gastrooesophageal reflux disease
     Route: 065
     Dates: start: 2007
  17. PREVACID 24 HR [Suspect]
     Active Substance: LANSOPRAZOLE
     Indication: Gastrooesophageal reflux disease
     Route: 065
     Dates: start: 2008
  18. PROTONIX [Suspect]
     Active Substance: PANTOPRAZOLE SODIUM
     Indication: Gastrooesophageal reflux disease
     Route: 065
     Dates: start: 2005, end: 2016
  19. PROTONIX [Suspect]
     Active Substance: PANTOPRAZOLE SODIUM
     Indication: Gastrooesophageal reflux disease
     Route: 065
     Dates: start: 2006
  20. PROTONIX [Suspect]
     Active Substance: PANTOPRAZOLE SODIUM
     Indication: Gastrooesophageal reflux disease
     Route: 065
     Dates: start: 20060328
  21. PROTONIX [Suspect]
     Active Substance: PANTOPRAZOLE SODIUM
     Indication: Gastrooesophageal reflux disease
     Route: 065
     Dates: start: 2007
  22. PROTONIX [Suspect]
     Active Substance: PANTOPRAZOLE SODIUM
     Indication: Gastrooesophageal reflux disease
     Dosage: GENERIC
     Route: 065
     Dates: start: 2016
  23. PROTONIX [Suspect]
     Active Substance: PANTOPRAZOLE SODIUM
     Indication: Gastrooesophageal reflux disease
     Dosage: 1 TABLET 2X/DAY FOR 8 WEEKS,1 TABLET 1X/DAY THEREAFTER
     Route: 065
     Dates: start: 20160630
  24. DIOVAN [Concomitant]
     Active Substance: VALSARTAN
     Indication: Hypertension
     Dates: start: 2004, end: 2011
  25. DIOVAN [Concomitant]
     Active Substance: VALSARTAN
     Indication: Hypertension
     Dates: start: 20041022
  26. DIOVAN [Concomitant]
     Active Substance: VALSARTAN
     Indication: Hypertension
     Dates: start: 20080204
  27. ARTHROTEC [Concomitant]
     Active Substance: DICLOFENAC SODIUM\MISOPROSTOL
     Indication: Arthritis
     Dates: start: 2005, end: 2006
  28. ARTHROTEC [Concomitant]
     Active Substance: DICLOFENAC SODIUM\MISOPROSTOL
     Indication: Arthritis
     Route: 048
     Dates: start: 20051129
  29. METHYLPREDNISOLONE [Concomitant]
     Active Substance: METHYLPREDNISOLONE
     Indication: Steroid therapy
     Dates: start: 2004
  30. METHYLPREDNISOLONE [Concomitant]
     Active Substance: METHYLPREDNISOLONE
     Indication: Steroid therapy
     Dosage: TK UTD
     Dates: start: 20041202
  31. PREMARIN [Concomitant]
     Active Substance: ESTROGENS, CONJUGATED
     Indication: Antioestrogen therapy
     Dates: start: 2004, end: 2008
  32. PREMARIN [Concomitant]
     Active Substance: ESTROGENS, CONJUGATED
     Indication: Antioestrogen therapy
     Dates: start: 20040311
  33. MOTRIN [Concomitant]
     Active Substance: IBUPROFEN
     Indication: Pain
     Dates: start: 2006
  34. MOTRIN [Concomitant]
     Active Substance: IBUPROFEN
     Indication: Pain
     Route: 048
     Dates: start: 20060803
  35. MOTRIN [Concomitant]
     Active Substance: IBUPROFEN
     Indication: Pain
     Dosage: GENERIC
     Dates: start: 2006
  36. MOTRIN [Concomitant]
     Active Substance: IBUPROFEN
     Indication: Pain
     Dosage: GENERIC- TK 1 T PO TID
     Route: 048
     Dates: start: 20060328
  37. AZITHROMYCIN [Concomitant]
     Active Substance: AZITHROMYCIN
     Indication: Antibiotic therapy
     Dates: start: 2006, end: 2014
  38. AZITHROMYCIN [Concomitant]
     Active Substance: AZITHROMYCIN
     Indication: Antibiotic therapy
     Dosage: TK UTD
     Dates: start: 20060425
  39. TOBRAMYCIN [Concomitant]
     Active Substance: TOBRAMYCIN
     Indication: Pneumonia
     Dates: start: 2005
  40. TOBRAMYCIN [Concomitant]
     Active Substance: TOBRAMYCIN
     Indication: Pneumonia
     Dosage: 0.3% OPHTH SOLN 5ML-INSTILL 1 DROP IN LEFT EYE QID FOR 5 DAYS
     Dates: start: 20051230
  41. TYLENOL [Concomitant]
     Active Substance: ACETAMINOPHEN
     Indication: Arthritis
     Dates: start: 2014, end: 2017
  42. ASPIRIN [Concomitant]
     Active Substance: ASPIRIN
     Indication: Anticoagulant therapy
     Route: 048
     Dates: start: 2014, end: 2017
  43. NICOTINAMIDE/CALCIUM PANTOTHENATE/BIOTIN/MECOBALAMIN/(6S)-5-METHYLTETR [Concomitant]
     Indication: Seasonal allergy
     Dates: start: 2015, end: 2017
  44. NICOTINAMIDE/CALCIUM PANTOTHENATE/BIOTIN/MECOBALAMIN/(6S)-5-METHYLTETR [Concomitant]
     Indication: Hypersensitivity
     Dates: start: 2015, end: 2017
  45. MINERALS\VITAMINS [Concomitant]
     Active Substance: MINERALS\VITAMINS
     Indication: Supplementation therapy
     Dates: start: 2007, end: 2008
  46. PEPCID AC [Concomitant]
     Active Substance: FAMOTIDINE
     Dosage: OTC, 1990,1984
  47. ZANTAC [Concomitant]
     Active Substance: RANITIDINE HYDROCHLORIDE
     Dosage: 1970,1989
  48. ZANTAC [Concomitant]
     Active Substance: RANITIDINE HYDROCHLORIDE
     Dosage: 150 (OTC)
  49. ZANTAC [Concomitant]
     Active Substance: RANITIDINE HYDROCHLORIDE
     Dosage: 75 (OTC)
  50. ZANTAC [Concomitant]
     Active Substance: RANITIDINE HYDROCHLORIDE
     Dosage: 150 (PRESCRIPTION)
  51. TUMS [Concomitant]
     Active Substance: CALCIUM CARBONATE
     Dosage: 2017, 1998
  52. PEPTO-BISMOL [Concomitant]
     Active Substance: BISMUTH SUBSALICYLATE
     Dates: start: 1990
  53. MILK OF MAGNESIA [Concomitant]
     Active Substance: MAGNESIUM HYDROXIDE
     Dosage: 2014, 2016, 2017- 2 TIMES A WEEK
  54. HYDROCHLOROTHIAZIDE\TRIAMTERENE [Concomitant]
     Active Substance: HYDROCHLOROTHIAZIDE\TRIAMTERENE
     Dosage: 37.5-25 MG
     Dates: start: 20101119
  55. GLYBURIDE [Concomitant]
     Active Substance: GLYBURIDE
     Dates: start: 20110506
  56. SIMVASTATIN [Concomitant]
     Active Substance: SIMVASTATIN
     Dates: start: 20110530
  57. LOSARTAN POTASSIUM [Concomitant]
     Active Substance: LOSARTAN POTASSIUM
     Dates: start: 20110531
  58. PREDNISONE [Concomitant]
     Active Substance: PREDNISONE
     Dates: start: 20110623
  59. HYDRALAZINE HYDROCHLORIDE [Concomitant]
     Active Substance: HYDRALAZINE HYDROCHLORIDE
     Dates: start: 20110803
  60. TRAMADOL HYDROCHLORIDE [Concomitant]
     Active Substance: TRAMADOL HYDROCHLORIDE
     Indication: Pain
     Dosage: TK 1 T PO QID PRN OR TAKE 1 TABLET BY MOUTH 4 TIMES A DAY AS NEEDED
     Route: 048
     Dates: start: 20120120
  61. NASONEX [Concomitant]
     Active Substance: MOMETASONE FUROATE
     Dosage: 50 MCG/AC SPR- USE 2 SPR~YS LEN BID PRN
     Dates: start: 20070227
  62. CLONIDINE HYDROCHLORIDE [Concomitant]
     Active Substance: CLONIDINE HYDROCHLORIDE
     Indication: Hypertension
     Dates: start: 2007, end: 2015
  63. CLONIDINE HYDROCHLORIDE [Concomitant]
     Active Substance: CLONIDINE HYDROCHLORIDE
     Indication: Hypertension
     Route: 048
     Dates: start: 20070120
  64. CLONIDINE HYDROCHLORIDE [Concomitant]
     Active Substance: CLONIDINE HYDROCHLORIDE
     Indication: Hypertension
     Dosage: CATAPRES-TISO.3/24HRDLS
     Dates: start: 20070215
  65. HYDROCHLOROTHIAZIDE [Concomitant]
     Active Substance: HYDROCHLOROTHIAZIDE
     Route: 048
     Dates: start: 20070121
  66. ALPRAZOLAM [Concomitant]
     Active Substance: ALPRAZOLAM
     Dates: start: 20111012
  67. LOVASTATIN [Concomitant]
     Active Substance: LOVASTATIN
     Dates: start: 20111020
  68. LORAZEPAM [Concomitant]
     Active Substance: LORAZEPAM
     Dates: start: 20071129
  69. LORAZEPAM [Concomitant]
     Active Substance: LORAZEPAM
     Route: 048
     Dates: start: 20070816
  70. LORAZEPAM [Concomitant]
     Active Substance: LORAZEPAM
     Dosage: TAKE 1 TABLET BY MOUTH TWICE A DAY AS NEEDED
     Route: 048
  71. BENICAR HCT [Concomitant]
     Active Substance: HYDROCHLOROTHIAZIDE\OLMESARTAN MEDOXOMIL
     Dosage: 40-12.5 MG
     Route: 048
     Dates: start: 20120104
  72. ACETAMINOPHEN\OXYCODONE HYDROCHLORIDE [Concomitant]
     Active Substance: ACETAMINOPHEN\OXYCODONE HYDROCHLORIDE
     Indication: Pain
     Dosage: ROXICET 5-325
     Dates: start: 20091225
  73. ACETAMINOPHEN\OXYCODONE HYDROCHLORIDE [Concomitant]
     Active Substance: ACETAMINOPHEN\OXYCODONE HYDROCHLORIDE
     Indication: Pain
     Dosage: OXYCODONE/APAP 10MG/325MG- TK 1 T PO Q 6 H
     Route: 048
     Dates: start: 20070508
  74. ACETAMINOPHEN\OXYCODONE HYDROCHLORIDE [Concomitant]
     Active Substance: ACETAMINOPHEN\OXYCODONE HYDROCHLORIDE
     Indication: Pain
     Dosage: 5-325 MG- TAKE 1 TABLET BY MOUTH EVERY 4 TO 6 HOURS AS NEEDED
     Route: 048
     Dates: start: 20160220
  75. RAMIPRIL [Concomitant]
     Active Substance: RAMIPRIL
     Dates: start: 20110507
  76. CYCLOBENZAPRINE [Concomitant]
     Active Substance: CYCLOBENZAPRINE
     Dates: start: 20070804
  77. ATROPINE\DIPHENOXYLATE [Concomitant]
     Active Substance: ATROPINE\DIPHENOXYLATE
     Dates: start: 20070918
  78. ATENOLOL [Concomitant]
     Active Substance: ATENOLOL
     Dates: start: 20100715
  79. AMLODIPINE BESYLATE AND BENAZEPRIL HYDROCHLORIDE [Concomitant]
     Active Substance: AMLODIPINE BESYLATE\BENAZEPRIL HYDROCHLORIDE
     Dosage: 10-20 MG
     Dates: start: 20100726
  80. DICLOFENAC SODIUM [Concomitant]
     Active Substance: DICLOFENAC SODIUM
     Dates: start: 20080709
  81. FLUTICASONE [Concomitant]
     Active Substance: FLUTICASONE
     Dosage: PROP 50 MCG SPRAY
     Dates: start: 20100820
  82. PROMETHAZINE [Concomitant]
     Active Substance: PROMETHAZINE HYDROCHLORIDE
     Dates: start: 20100820
  83. BENICAR [Concomitant]
     Active Substance: OLMESARTAN MEDOXOMIL
     Dates: start: 20100824
  84. FLUVIRIN NOS [Concomitant]
     Active Substance: INFLUENZA VIRUS VACCINE
     Dosage: 2010-2011 VIAL
     Dates: start: 20101030
  85. FLUVIRIN NOS [Concomitant]
     Active Substance: INFLUENZA VIRUS VACCINE
     Dosage: FLUZONE HIGH-DOSE 2014-150-5ML SYR
     Dates: start: 20140913
  86. LISINOPRIL [Concomitant]
     Active Substance: LISINOPRIL
     Dates: start: 20101115
  87. LISINOPRIL [Concomitant]
     Active Substance: LISINOPRIL
     Dates: start: 20100307
  88. AMOXICILLIN\CLAVULANATE POTASSIUM [Concomitant]
     Active Substance: AMOXICILLIN\CLAVULANATE POTASSIUM
     Dosage: 875-125 MG
     Dates: start: 20140723
  89. NIFEDIPINE [Concomitant]
     Active Substance: NIFEDIPINE
     Dates: start: 20140902
  90. FERROUS SULFATE [Concomitant]
     Active Substance: FERROUS SULFATE
     Dates: start: 20091225
  91. FOLIC ACID [Concomitant]
     Active Substance: FOLIC ACID
     Dates: start: 20091225
  92. LOVENOX [Concomitant]
     Active Substance: ENOXAPARIN SODIUM
     Dosage: PREFILLED SYRN
     Dates: start: 20091225
  93. LOVENOX [Concomitant]
     Active Substance: ENOXAPARIN SODIUM
     Dosage: 40 MG/0.4 ML SYR
     Dates: start: 20130805
  94. SULFAMETHOXAZOLE\TRIMETHOPRIM [Concomitant]
     Active Substance: SULFAMETHOXAZOLE\TRIMETHOPRIM
     Dates: start: 20091225
  95. FLUCONAZOLE [Concomitant]
     Active Substance: FLUCONAZOLE
     Dates: start: 20141118
  96. HYDROCHLOROTHIAZIDE\LOSARTAN POTASSIUM [Concomitant]
     Active Substance: HYDROCHLOROTHIAZIDE\LOSARTAN POTASSIUM
     Dosage: 50-12.5MG
     Dates: start: 20100708
  97. METOPROLOL [Concomitant]
     Active Substance: METOPROLOL
     Dates: start: 20100629
  98. METOPROLOL [Concomitant]
     Active Substance: METOPROLOL
     Dosage: METOPROLOL TARTRATE- TAKE 1 TABLET TWICE DAILY
     Route: 048
  99. FEXOFENADINE [Concomitant]
     Active Substance: FEXOFENADINE HYDROCHLORIDE
     Dates: start: 20100324
  100. AMOXICILLIN [Concomitant]
     Active Substance: AMOXICILLIN
     Dates: start: 20100223
  101. AMOXICILLIN [Concomitant]
     Active Substance: AMOXICILLIN
     Route: 048
     Dates: start: 20070104
  102. CRESTOR [Concomitant]
     Active Substance: ROSUVASTATIN CALCIUM
     Dates: start: 20080709
  103. ACETAMI/CODEIN [Concomitant]
     Dosage: 300-30 MG
     Dates: start: 20090205
  104. CIPROFLOXACIN [Concomitant]
     Active Substance: CIPROFLOXACIN
     Dates: start: 20150912
  105. CIPROFLOXACIN [Concomitant]
     Active Substance: CIPROFLOXACIN
     Dosage: 0.3% OPHTH SOLN 5ML (EYE)- INSTILL 1 DROP IN EACH EYE QID FOR 7 DAYS
     Dates: start: 20140731
  106. PHENAZOPYRIDINE [Concomitant]
     Active Substance: PHENAZOPYRIDINE
     Dates: start: 20150912
  107. DOXYCYCLINE HYCLATE [Concomitant]
     Active Substance: DOXYCYCLINE HYCLATE
     Dates: start: 20160229
  108. METHOCARBAMOL [Concomitant]
     Active Substance: METHOCARBAMOL
     Dates: start: 20120630
  109. VESICARE [Concomitant]
     Active Substance: SOLIFENACIN SUCCINATE
     Dates: start: 20130808
  110. BACLOFEN [Concomitant]
     Active Substance: BACLOFEN
     Dates: start: 20130805
  111. BACLOFEN [Concomitant]
     Active Substance: BACLOFEN
     Route: 048
     Dates: start: 20160508
  112. ZYMAR [Concomitant]
     Active Substance: GATIFLOXACIN
     Dosage: 0.3% OPHTH SOLN 5ML- INT 1 GTT QID IN OS
     Dates: start: 20060705
  113. SINGULAIR [Concomitant]
     Active Substance: MONTELUKAST SODIUM
     Dates: start: 20060517
  114. OMNICEF [Concomitant]
     Active Substance: CEFDINIR
     Dates: start: 20051230
  115. VERELAN [Concomitant]
     Active Substance: VERAPAMIL HYDROCHLORIDE
     Dates: start: 20070227
  116. VERELAN [Concomitant]
     Active Substance: VERAPAMIL HYDROCHLORIDE
     Dosage: VERAPAMIL
     Dates: start: 20080528
  117. CARISOPRODOL [Concomitant]
     Active Substance: CARISOPRODOL
     Indication: Muscle spasms
     Route: 048
     Dates: start: 20070508
  118. LEVAQUIN [Concomitant]
     Active Substance: LEVOFLOXACIN
     Route: 048
     Dates: start: 20070508
  119. NASAREL [Concomitant]
     Active Substance: FLUNISOLIDE
     Dosage: 29MCG/0.025% NASAL SOL 25ML- SPR TWICE LEN BID PRN
     Dates: start: 20070227
  120. CELEBREX [Concomitant]
     Active Substance: CELECOXIB
     Route: 048
     Dates: start: 20070104
  121. RESTASIS [Concomitant]
     Active Substance: CYCLOSPORINE
     Dosage: INT 1 GTT IN OU BID
     Route: 047
     Dates: start: 20060928
  122. MOXIFLOXACIN [Concomitant]
     Active Substance: MOXIFLOXACIN
     Route: 048
     Dates: start: 20160630
  123. SULINDAC [Concomitant]
     Active Substance: SULINDAC
     Indication: Arthralgia
     Dosage: TAKE 1 TABLET BY MOUTH TWICE DAILY FOR 3 DAYS THEN 1 TABLET TWICE DAILY AS NEEDED
     Route: 048
     Dates: start: 20160508
  124. MEDOXOMIL-HCTZ [Concomitant]
  125. ESCIN/LEVOTHYROXINE [Concomitant]
  126. NAPROXEN [Concomitant]
     Active Substance: NAPROXEN
  127. ACETAMINOPHEN\HYDROCODONE [Concomitant]
     Active Substance: ACETAMINOPHEN\HYDROCODONE
  128. FLUZONE [Concomitant]
     Active Substance: INFLUENZA A VIRUS A/CALIFORNIA/7/2009 X-179A (H1N1) ANTIGEN (FORMALDEHYDE INACTIVATED)\INFLUENZA A V
  129. ZYRTEC [Concomitant]
     Active Substance: CETIRIZINE HYDROCHLORIDE
  130. ARTHRITIS [Concomitant]
     Active Substance: TROLAMINE SALICYLATE
  131. DOCUSATE SODIUM [Concomitant]
     Active Substance: DOCUSATE SODIUM
  132. TROLAMINE SALICYLATE [Concomitant]
     Active Substance: TROLAMINE SALICYLATE
  133. COENZYME Q10 [Concomitant]
     Active Substance: DIETARY SUPPLEMENT\UBIDECARENONE
  134. MAGNESIUM OXIDE [Concomitant]
     Active Substance: MAGNESIUM OXIDE
  135. CHLORTHALIDONE [Concomitant]
     Active Substance: CHLORTHALIDONE
  136. SHINGRIX [Concomitant]
     Active Substance: RECOMBINANT VARICELLA ZOSTER VIRUS (VZV) GLYCOPROTEIN E
  137. BOOSTRIX [Concomitant]
     Active Substance: TETANUS TOXOID, REDUCED DIPHTHERIA TOXOID AND ACELLULAR PERTUSSIS VACCINE, ADSORBED ANTIGENS

REACTIONS (5)
  - Chronic kidney disease [Not Recovered/Not Resolved]
  - End stage renal disease [Not Recovered/Not Resolved]
  - Renal injury [Not Recovered/Not Resolved]
  - Chronic kidney disease-mineral and bone disorder [Unknown]
  - Constipation [Not Recovered/Not Resolved]

NARRATIVE: CASE EVENT DATE: 20140101
